FAERS Safety Report 6508189-5 (Version None)
Quarter: 2009Q4

REPORT INFORMATION
  Report Type: 
  Country: None (occurrence: None)
  Receive Date: 20091221
  Receipt Date: 20090106
  Transmission Date: 20100525
  Serious: No
  Sender: FDA-Public Use
  Company Number: US-ASTRAZENECA-2008UW28577

PATIENT
  Age: 638 Month
  Sex: Male
  Weight: 89.8 kg

DRUGS (4)
  1. CRESTOR [Suspect]
     Indication: HYPERCHOLESTEROLAEMIA
     Dosage: 5 MG
     Route: 048
     Dates: start: 20081001, end: 20081101
  2. PLAVIX [Concomitant]
  3. LOPRESSOR [Concomitant]
  4. LIPITOR [Concomitant]

REACTIONS (5)
  - DYSPNOEA [None]
  - FATIGUE [None]
  - GAIT DISTURBANCE [None]
  - MUSCLE TIGHTNESS [None]
  - MYALGIA [None]
